FAERS Safety Report 8586312-9 (Version None)
Quarter: 2012Q3

REPORT INFORMATION
  Report Type: 
  Country: None (occurrence: None)
  Receive Date: 20120810
  Receipt Date: 20120720
  Transmission Date: 20120928
  Serious: Yes (Hospitalization, Other)
  Sender: FDA-Public Use
  Company Number: US-009507513-1208USA004205

PATIENT

DRUGS (2)
  1. REBETOL [Suspect]
     Indication: HEPATITIS C
     Dosage: UNK
     Dates: start: 20020104, end: 20021206
  2. PEG-INTRON [Suspect]
     Indication: HEPATITIS C
     Dosage: UNK
     Dates: start: 20020104, end: 20021206

REACTIONS (10)
  - CHOLECYSTECTOMY [None]
  - HEPATITIS C [None]
  - BILIARY DRAINAGE [None]
  - DEPRESSION [None]
  - CONFUSIONAL STATE [None]
  - FLUID RETENTION [None]
  - AGGRESSION [None]
  - PAIN [None]
  - MEMORY IMPAIRMENT [None]
  - RESPIRATORY TRACT CONGESTION [None]
